FAERS Safety Report 5895825-X (Version None)
Quarter: 2008Q3

REPORT INFORMATION
  Report Type: 
  Country: None (occurrence: None)
  Receive Date: 20080822
  Receipt Date: 20080310
  Transmission Date: 20090109
  Serious: Yes (Death)
  Sender: FDA-Public Use
  Company Number: T200800523

PATIENT
  Age: 51 Year
  Sex: Male

DRUGS (5)
  1. OXYCODONE AND ACETAMINOPHEN [Suspect]
     Indication: PROCEDURAL PAIN
     Dosage: ONE TABLET EVERY 4-6 HOURS, ORAL
     Route: 048
     Dates: start: 20070810
  2. SOMA [Suspect]
     Dosage: 350 MG, QHS, ORAL
     Route: 048
  3. OXYCODONE AND ACETAMINOPHEN [Concomitant]
  4. AMBIEN [Concomitant]
  5. UNSPECIFIED MEDICATIONS [Concomitant]

REACTIONS (1)
  - ACCIDENTAL OVERDOSE [None]
